FAERS Safety Report 5894092-0 (Version None)
Quarter: 2008Q3

REPORT INFORMATION
  Report Type: 
  Country: None (occurrence: None)
  Receive Date: 20080923
  Receipt Date: 20071226
  Transmission Date: 20090109
  Serious: No
  Sender: FDA-Public Use
  Company Number: US-ASTRAZENECA-2007UW28894

PATIENT
  Sex: Female
  Weight: 88.5 kg

DRUGS (3)
  1. SEROQUEL [Suspect]
     Indication: ANXIETY
     Route: 048
     Dates: start: 20071201
  2. SEROQUEL [Suspect]
     Indication: FLIGHT OF IDEAS
     Route: 048
     Dates: start: 20071201
  3. LEXAPRO [Concomitant]

REACTIONS (4)
  - CONSTIPATION [None]
  - IRRITABILITY [None]
  - SOMNOLENCE [None]
  - WEIGHT INCREASED [None]
